FAERS Safety Report 6787502-8 (Version None)
Quarter: 2010Q2

REPORT INFORMATION
  Report Type: 
  Country: None (occurrence: None)
  Receive Date: 20100623
  Receipt Date: 20080721
  Transmission Date: 20101027
  Serious: Yes (Other)
  Sender: FDA-Public Use
  Company Number: US-PFIZER INC-2007000032

PATIENT
  Sex: Female
  Weight: 56.7 kg

DRUGS (8)
  1. AROMASIN [Suspect]
     Indication: BREAST CANCER
     Route: 048
     Dates: start: 20051001, end: 20060101
  2. INDERAL [Concomitant]
     Indication: TACHYCARDIA
  3. VITAMINS [Concomitant]
  4. CALCIUM CARBONATE [Concomitant]
  5. VITAMIN D [Concomitant]
  6. VITAMIN B COMPLEX CAP [Concomitant]
  7. CO-Q-10 [Concomitant]
  8. ESTER-C [Concomitant]

REACTIONS (7)
  - ARTHRALGIA [None]
  - ARTHRITIS [None]
  - MUSCLE SPASMS [None]
  - MUSCULOSKELETAL STIFFNESS [None]
  - MYALGIA [None]
  - OSTEOPENIA [None]
  - PAIN [None]
